FAERS Safety Report 5282309-5 (Version None)
Quarter: 2007Q1

REPORT INFORMATION
  Report Type: 
  Country: None (occurrence: None)
  Receive Date: 20070331
  Receipt Date: 20070319
  Transmission Date: 20070707
  Serious: Yes (Other)
  Sender: FDA-Public Use
  Company Number: US-PFIZER INC-2007024284

PATIENT
  Sex: Female
  Weight: 62.1 kg

DRUGS (13)
  1. CHANTIX [Suspect]
     Indication: SMOKING CESSATION THERAPY
  2. GENERAL NUTRIENTS [Suspect]
  3. WARFARIN SODIUM [Suspect]
  4. BUPAP [Concomitant]
  5. DEMEROL [Concomitant]
  6. XANAX [Concomitant]
  7. ALBUTEROL [Concomitant]
     Route: 055
  8. ACETYLSALICYLIC ACID SRT [Concomitant]
  9. NITROGLYCERIN [Concomitant]
  10. MONTELUKAST SODIUM [Concomitant]
  11. LOTREL [Concomitant]
  12. PLETAL [Concomitant]
  13. ZOCOR [Concomitant]

REACTIONS (6)
  - DECREASED APPETITE [None]
  - FEELING COLD [None]
  - HAEMORRHAGE SUBCUTANEOUS [None]
  - NAUSEA [None]
  - POLYDIPSIA [None]
  - WEIGHT INCREASED [None]
